FAERS Safety Report 8444573 (Version 2)
Quarter: 2013Q2

REPORT INFORMATION
  Report Type: Report from Study
  Country: BR (occurrence: BR)
  Receive Date: 20120307
  Receipt Date: 20130619
  Transmission Date: 20140414
  Serious: Yes (Other)
  Sender: FDA-Public Use
  Company Number: BR-SANOFI-AVENTIS-2012SA013520

PATIENT
  Age: 68 Year
  Sex: Male
  Weight: 78 kg

DRUGS (11)
  1. LANTUS [Suspect]
     Indication: TYPE 2 DIABETES MELLITUS
     Dosage: FREQ: 16 IU DAILY/ AT NIGHT
     Route: 065
     Dates: start: 2004, end: 201211
  2. AUTOPEN 24 [Suspect]
     Indication: DEVICE THERAPY
     Dates: start: 2004
  3. DILTIAZEM [Concomitant]
     Indication: IMMUNOSUPPRESSION
     Route: 048
  4. RAPAMUNE [Concomitant]
     Indication: IMMUNOSUPPRESSION
     Route: 048
  5. MYFORTIC [Concomitant]
     Indication: IMMUNOSUPPRESSION
     Route: 048
  6. CALCIFEROL [Concomitant]
     Route: 048
  7. FOLIC ACID [Concomitant]
     Indication: BLOOD URIC ACID
     Route: 048
  8. ATENOLOL [Concomitant]
     Indication: BLOOD PRESSURE
     Route: 048
  9. MICARDIS [Concomitant]
     Indication: BLOOD PRESSURE
     Route: 048
  10. OMEPRAZOLE [Concomitant]
     Indication: GASTRIC DISORDER
     Route: 048
  11. PROGRAF [Concomitant]
     Indication: IMMUNOSUPPRESSION
     Route: 048
     Dates: start: 2008

REACTIONS (6)
  - Endocarditis [Recovered/Resolved]
  - Renal impairment [Not Recovered/Not Resolved]
  - Blood creatinine increased [Not Recovered/Not Resolved]
  - Renal transplant [Unknown]
  - Liver transplant [Recovering/Resolving]
  - Hypoglycaemia [Recovered/Resolved]
